FAERS Safety Report 5448986-0 (Version None)
Quarter: 2007Q3

REPORT INFORMATION
  Report Type: 
  Country: None (occurrence: None)
  Receive Date: 20070911
  Receipt Date: 20070831
  Transmission Date: 20080115
  Serious: Yes (Hospitalization)
  Sender: FDA-Public Use
  Company Number: FR-ROCHE-514930

PATIENT
  Age: 59 Year
  Sex: Male

DRUGS (2)
  1. ROFERON-A [Suspect]
     Dosage: DOSAGE REGIMEN REPORTED AS 4,5 KIU 3X/.
     Route: 058
     Dates: start: 20060601, end: 20070707
  2. REBETOL [Suspect]
     Route: 048
     Dates: start: 20060601, end: 20070719

REACTIONS (2)
  - EPILEPSY [None]
  - MYOCLONUS [None]
